FAERS Safety Report 22656940 (Version 1)
Quarter: 2023Q2

REPORT INFORMATION
  Report Type: Spontaneous
  Country: GB (occurrence: None)
  Receive Date: 20230630
  Receipt Date: 20230630
  Transmission Date: 20230722
  Serious: Yes (Life-Threatening, Hospitalization, Other)
  Sender: FDA-Public Use
  Company Number: 2023A147940

PATIENT
  Age: 83 Year
  Sex: Female

DRUGS (3)
  1. DAPAGLIFLOZIN [Suspect]
     Active Substance: DAPAGLIFLOZIN
     Indication: Adverse drug reaction
     Route: 048
     Dates: end: 20230623
  2. INSULIN HUMAN [Concomitant]
     Active Substance: INSULIN HUMAN
     Indication: Type 2 diabetes mellitus
  3. LINAGLIPTIN [Concomitant]
     Active Substance: LINAGLIPTIN
     Indication: Type 2 diabetes mellitus

REACTIONS (2)
  - Diabetic ketoacidosis [Recovered/Resolved]
  - Urinary tract infection [Recovering/Resolving]

NARRATIVE: CASE EVENT DATE: 20230622
